FAERS Safety Report 13338949 (Version 2)
Quarter: 2017Q1

REPORT INFORMATION
  Report Type: Report from Study
  Country: US (occurrence: US)
  Receive Date: 20170315
  Receipt Date: 20170321
  Transmission Date: 20170428
  Serious: Yes (Death, Other)
  Sender: FDA-Public Use
  Company Number: GXBR2017US001034

PATIENT

DRUGS (3)
  1. TACROLIMUS. [Concomitant]
     Active Substance: TACROLIMUS
     Indication: RENAL TRANSPLANT
     Dosage: MATERNAL DOSE: 1 MG, BID
     Route: 064
     Dates: start: 20110210
  2. MYCOPHENOLATE MOFETIL. [Suspect]
     Active Substance: MYCOPHENOLATE MOFETIL
     Indication: RENAL TRANSPLANT
     Dosage: MATERNAL DOSE: 500 MG, BID
     Route: 064
  3. RAPAMUNE [Concomitant]
     Active Substance: SIROLIMUS
     Indication: RENAL TRANSPLANT
     Dosage: MATERNAL DOSE: 2 MG, QD
     Route: 064
     Dates: start: 20110210

REACTIONS (2)
  - Foetal exposure during pregnancy [Fatal]
  - Complication of pregnancy [Fatal]
